FAERS Safety Report 10244700 (Version 2)
Quarter: 2014Q3

REPORT INFORMATION
  Report Type: Spontaneous
  Country: FR (occurrence: FR)
  Receive Date: 20140618
  Receipt Date: 20140731
  Transmission Date: 20150326
  Serious: Yes (Hospitalization)
  Sender: FDA-Public Use
  Company Number: FR-GLAXOSMITHKLINE-B1005103A

PATIENT
  Age: 89 Year
  Sex: Female

DRUGS (3)
  1. ARIXTRA [Suspect]
     Active Substance: FONDAPARINUX SODIUM
     Indication: PHLEBITIS
     Route: 058
     Dates: start: 20140428, end: 20140512
  2. KARDEGIC [Suspect]
     Active Substance: ASPIRIN LYSINE
     Indication: PERIPHERAL ARTERIAL OCCLUSIVE DISEASE
     Route: 048
  3. INNOHEP [Suspect]
     Active Substance: TINZAPARIN SODIUM
     Indication: PHLEBITIS
     Dosage: 4000IU PER DAY
     Route: 058
     Dates: start: 20140513, end: 20140513

REACTIONS (2)
  - Haematoma [Recovering/Resolving]
  - Oedema peripheral [Recovering/Resolving]

NARRATIVE: CASE EVENT DATE: 20140514
